FAERS Safety Report 5209615-4 (Version None)
Quarter: 2006Q4

REPORT INFORMATION
  Report Type: 
  Country: None (occurrence: None)
  Receive Date: 20061122
  Receipt Date: 20051103
  Transmission Date: 20070319
  Serious: Yes (Other)
  Sender: FDA-Public Use
  Company Number: 2005151419

PATIENT
  Age: 72 Year
  Sex: Female
  Weight: 39.9165 kg

DRUGS (12)
  1. LIPITOR [Suspect]
     Indication: BLOOD CHOLESTEROL INCREASED
     Dosage: 10 MG (10 MG, 1 IN 1 D)
  2. LIPITOR [Suspect]
     Indication: BLOOD TRIGLYCERIDES INCREASED
     Dosage: 10 MG (10 MG, 1 IN 1 D)
  3. FOSAMAX [Suspect]
     Indication: SCOLIOSIS
     Dosage: 1 IN 1 WK
  4. OSCAL (CALCIUM CARBONATE) [Concomitant]
  5. NEXIUM [Concomitant]
  6. TYLENOL W/ CODEINE [Concomitant]
  7. VICODIN [Concomitant]
  8. SYNTHROID [Concomitant]
  9. CLARITIN [Concomitant]
  10. VENTOLIN [Concomitant]
  11. PREMARIN [Concomitant]
  12. CLARINEX [Concomitant]

REACTIONS (2)
  - DYSPEPSIA [None]
  - PANCREATITIS [None]
